FAERS Safety Report 9031007 (Version 2)
Quarter: 2013Q1

REPORT INFORMATION
  Report Type: Spontaneous
  Country: US (occurrence: US)
  Receive Date: 20130123
  Receipt Date: 20130128
  Transmission Date: 20140127
  Serious: Yes (Other)
  Sender: FDA-Public Use
  Company Number: PHHY2013US005169

PATIENT
  Age: 34 Year
  Sex: Female

DRUGS (11)
  1. CITALOPRAM [Suspect]
     Dosage: 20 MG, DAILY
  2. CITALOPRAM [Interacting]
     Dosage: 40 MG, DAILY
  3. IBUPROFEN [Interacting]
     Indication: FRACTURE PAIN
  4. OXAPROZIN [Interacting]
     Indication: BURSITIS
     Dosage: 600 MG, BID
  5. NAPROXEN [Interacting]
     Dosage: 440 MG, BID
  6. LORAZEPAM [Concomitant]
     Dosage: 1 MG, BID
  7. HYDROXYZINE PAMOATE [Concomitant]
     Dosage: 50-100 MG, PRN
  8. ALBUTEROL [Concomitant]
     Indication: COUGH
     Dosage: UNK UKN, UNK
  9. ALBUTEROL [Concomitant]
     Indication: WHEEZING
  10. ESTRADIOL [Concomitant]
     Dosage: 1 MG, UNK
  11. METHOCARBAMOL [Concomitant]
     Dosage: 500-1000 MG, Q6H

REACTIONS (7)
  - Increased tendency to bruise [Recovered/Resolved]
  - Impaired healing [Unknown]
  - Excoriation [Unknown]
  - Ecchymosis [Unknown]
  - Skin lesion [Unknown]
  - Drug interaction [Unknown]
  - Contusion [Unknown]
